FAERS Safety Report 9526468 (Version 3)
Quarter: 2013Q4

REPORT INFORMATION
  Report Type: Spontaneous
  Country: FR (occurrence: FR)
  Receive Date: 20130916
  Receipt Date: 20131022
  Transmission Date: 20140711
  Serious: Yes (Other)
  Sender: FDA-Public Use
  Company Number: FR-ABBVIE-13P-056-1127766-00

PATIENT
  Age: 46 Year
  Sex: Male
  Weight: 90 kg

DRUGS (7)
  1. HUMIRA [Suspect]
     Indication: ANKYLOSING SPONDYLITIS
     Route: 058
     Dates: start: 201007, end: 201211
  2. HUMIRA [Suspect]
     Indication: PSORIASIS
  3. PREVISCAN [Concomitant]
     Indication: TACHYCARDIA
     Dates: start: 2009
  4. PREVISCAN [Concomitant]
     Indication: ATRIAL FIBRILLATION
  5. FLECAINE [Concomitant]
     Indication: TACHYCARDIA
  6. FLECAINE [Concomitant]
     Indication: ATRIAL FIBRILLATION
  7. DETENSIEL [Concomitant]
     Indication: HYPERTENSION

REACTIONS (1)
  - Adenolymphoma [Unknown]
